FAERS Safety Report 7577163-2 (Version None)
Quarter: 2011Q2

REPORT INFORMATION
  Report Type: 
  Country: None (occurrence: None)
  Receive Date: 20110628
  Receipt Date: 20100908
  Transmission Date: 20111010
  Serious: Yes (Hospitalization, Other)
  Sender: FDA-Public Use
  Company Number: US-BAYER-201021006NA

PATIENT
  Age: 37 Year
  Sex: Female
  Weight: 127.44 kg

DRUGS (38)
  1. ATENOLOL [Concomitant]
     Indication: HYPERTENSION
     Dosage: 75 MG, CONT
     Route: 048
     Dates: start: 19990101, end: 20100101
  2. IBUPROFEN [Concomitant]
     Indication: FALL
     Dosage: UNK
     Dates: start: 20070101
  3. PROMETHAZINE [Concomitant]
     Dosage: 12.5 MG, PRN
     Dates: start: 20080401
  4. FLUCONAZOLE [Concomitant]
     Dosage: UNK
     Dates: start: 20070101
  5. MIDRIN [Concomitant]
     Indication: MIGRAINE
     Dosage: UNK UNK, CONT
     Route: 048
  6. YAZ [Suspect]
     Indication: ORAL CONTRACEPTION
  7. GABAPENTIN [Concomitant]
     Dosage: UNK
     Dates: start: 20070101
  8. SKELAXIN [Concomitant]
     Dosage: UNK
     Dates: start: 20070101
  9. PROMETHAZINE [Concomitant]
     Dosage: UNK
     Dates: start: 20070101
  10. ASCENCYL [Concomitant]
     Dosage: UNK
     Dates: start: 20070101
  11. LOESTRIN 1.5/30 [Concomitant]
     Dosage: UNK
     Dates: start: 20080303
  12. JANUMET [Concomitant]
     Indication: INSULIN RESISTANCE
     Dosage: UNK UNK, CONT
     Route: 048
     Dates: start: 20060101
  13. HYOSCYAMINE [Concomitant]
     Dosage: UNK
     Dates: start: 20060101
  14. METRONIDAZOLE [Concomitant]
     Dosage: 500 MG, BID
     Dates: start: 20080401
  15. POTASSIUM [POTASSIUM] [Concomitant]
     Indication: HYPOKALAEMIA
     Dosage: UNK
     Dates: start: 20040101
  16. FUROSEMIDE [Concomitant]
     Dosage: UNK
     Dates: start: 20060101
  17. PROPRANOLOL [Concomitant]
     Dosage: UNK
     Dates: start: 20070101
  18. RAMIPRIL [Concomitant]
     Dosage: UNK
     Dates: start: 20080101
  19. TUSSIONEX [BROMHEXINE HYDROCHLORIDE,ZIPEPROL] [Concomitant]
     Dosage: UNK
     Dates: start: 20060101
  20. TENORMIN [Concomitant]
  21. ATENOLOL [Concomitant]
     Indication: RENAL DISORDER
  22. TRAMADOL HCL [Concomitant]
  23. HYDROCODONE BITARTRATE AND ACETAMINOPHEN [Concomitant]
     Dosage: UNK
     Dates: start: 20070101
  24. LOVASTATIN [Concomitant]
     Indication: BLOOD CHOLESTEROL INCREASED
  25. NSAID'S [Concomitant]
  26. JANUMET [Concomitant]
     Indication: DIABETES MELLITUS
  27. AZITHROMYCIN [Concomitant]
     Dosage: UNK
     Dates: start: 20070101
  28. PROMETHAZINE [Concomitant]
     Dosage: 25 MG, PRN
     Dates: start: 20080401
  29. HYOSCYAMINE [Concomitant]
     Dosage: 0.125 MG, MT
     Dates: start: 20080401
  30. YAZ [Suspect]
     Indication: POLYCYSTIC OVARIES
     Dosage: UNK
     Dates: start: 20080312, end: 20080414
  31. METHOCARBAMOL [Concomitant]
     Dosage: UNK
     Dates: start: 20070101
  32. PROVERA [Concomitant]
     Indication: AMENORRHOEA
     Dosage: UNK
     Dates: start: 20060113
  33. TRI-LUMA [Concomitant]
     Dosage: UNK UNK, HS
     Route: 061
     Dates: start: 20080401
  34. ALTACE [Concomitant]
     Indication: HYPERTENSION
     Dosage: 10 MG, UNK
     Dates: start: 19990101, end: 20100101
  35. LYRICA [Concomitant]
     Dosage: UNK
     Dates: start: 20070101
  36. CARAFATE [Concomitant]
     Dosage: UNK
     Dates: start: 20070101
  37. TOBRADEX [Concomitant]
     Dosage: UNK
     Dates: start: 20070101
  38. PROVERA [Concomitant]
     Dosage: UNK
     Dates: start: 20080103

REACTIONS (4)
  - PAIN IN EXTREMITY [None]
  - DEEP VEIN THROMBOSIS [None]
  - MUSCLE SPASMS [None]
  - PAIN [None]
